FAERS Safety Report 24827664 (Version 1)
Quarter: 2025Q1

REPORT INFORMATION
  Report Type: Spontaneous
  Country: US (occurrence: US)
  Receive Date: 20250109
  Receipt Date: 20250109
  Transmission Date: 20250409
  Serious: No
  Sender: JAZZ
  Company Number: US-JAZZ PHARMACEUTICALS-2024-US-009604

PATIENT
  Age: 71 Year
  Sex: Female

DRUGS (1)
  1. ZEPZELCA [Suspect]
     Active Substance: LURBINECTEDIN
     Indication: Bladder cancer

REACTIONS (7)
  - Aspartate aminotransferase increased [Unknown]
  - Alanine aminotransferase increased [Unknown]
  - Anaemia [Unknown]
  - Fatigue [Unknown]
  - Hypertransaminasaemia [Recovered/Resolved]
  - Blood lactate dehydrogenase abnormal [Unknown]
  - Off label use [Unknown]
